FAERS Safety Report 9170523 (Version 1)
Quarter: 2013Q1

REPORT INFORMATION
  Report Type: Spontaneous
  Country: IT (occurrence: None)
  Receive Date: 20130311
  Receipt Date: 20130311
  Transmission Date: 20140127
  Serious: Yes (Other)
  Sender: FDA-Public Use
  Company Number: 2012-23514

PATIENT
  Age: 72 Year
  Sex: Male

DRUGS (1)
  1. OXALIPLATIN [Suspect]
     Indication: RECTAL ADENOCARCINOMA
     Dosage: 130 MG/CYCLIC, INTRAVENOUS
     Route: 042
     Dates: start: 20120622, end: 20121116

REACTIONS (2)
  - Thrombocytopenia [None]
  - Asthenia [None]
